FAERS Safety Report 4485228-7 (Version None)
Quarter: 2004Q4

REPORT INFORMATION
  Report Type: 
  Country: None (occurrence: None)
  Receive Date: 20041026
  Receipt Date: 20040721
  Transmission Date: 20050328
  Serious: No
  Sender: FDA-Public Use
  Company Number: US-BRISTOL-MYERS SQUIBB COMPANY-12647897

PATIENT
  Sex: Female
  Weight: 109 kg

DRUGS (3)
  1. GLUCOPHAGE XR [Suspect]
     Indication: DIABETES MELLITUS
     Route: 048
     Dates: start: 20040715
  2. MEVACOR [Concomitant]
  3. MULTI-VITAMIN [Concomitant]

REACTIONS (1)
  - DIARRHOEA [None]
